FAERS Safety Report 4681422-0 (Version None)
Quarter: 2005Q2

REPORT INFORMATION
  Report Type: 
  Country: None (occurrence: None)
  Receive Date: 20050603
  Receipt Date: 20050511
  Transmission Date: 20051028
  Serious: Yes (Other)
  Sender: FDA-Public Use
  Company Number: 2005UW07460

PATIENT
  Age: 11 Year
  Sex: Female
  Weight: 86.4 kg

DRUGS (5)
  1. ATACAND [Suspect]
     Indication: HYPERTENSION
     Route: 048
     Dates: start: 20050117, end: 20050125
  2. HYDROCHLOROTHIAZIDE [Suspect]
     Indication: HYPERTENSION
     Route: 048
  3. ISRADIPINE [Suspect]
     Indication: BLOOD PRESSURE ABNORMAL
     Route: 048
     Dates: start: 20041224, end: 20050125
  4. PREDNISONE [Concomitant]
     Indication: ADRENAL CORTICAL INSUFFICIENCY
     Route: 048
     Dates: start: 20041224
  5. BACTRIM [Concomitant]
     Route: 048
     Dates: start: 20041224

REACTIONS (1)
  - HYPOTENSION [None]
